FAERS Safety Report 9101123 (Version 1)
Quarter: 2013Q1

REPORT INFORMATION
  Report Type: Spontaneous
  Country: GB (occurrence: GB)
  Receive Date: 20130218
  Receipt Date: 20130218
  Transmission Date: 20140127
  Serious: Yes (Hospitalization, Other)
  Sender: FDA-Public Use
  Company Number: GB-TEVA-385550ISR

PATIENT
  Age: 89 Year
  Sex: Female

DRUGS (11)
  1. NITROFURANTOIN [Suspect]
     Route: 048
     Dates: start: 20120706
  2. ATENOLOL [Concomitant]
  3. FOLIC ACID [Concomitant]
  4. TETRABENAZINE [Concomitant]
  5. ASPIRIN [Concomitant]
  6. PARACETAMOL [Concomitant]
  7. TEMAZEPAM [Concomitant]
  8. HYDROXYCARBAMIDE [Concomitant]
  9. ANAGRELIDE [Concomitant]
  10. OMEPRAZOLE [Concomitant]
  11. VITAMIN B COMPOUND STRONG [Concomitant]

REACTIONS (12)
  - Treatment failure [Recovered/Resolved]
  - Escherichia urinary tract infection [Unknown]
  - Sepsis [Unknown]
  - Hypotension [Unknown]
  - Chills [Unknown]
  - Glomerular filtration rate decreased [Unknown]
  - Renal failure acute [Unknown]
  - Blood creatinine increased [Unknown]
  - Decreased appetite [Unknown]
  - Pollakiuria [Unknown]
  - Drug prescribing error [Unknown]
  - Urine odour abnormal [Unknown]
